FAERS Safety Report 6984475-X (Version None)
Quarter: 2010Q3

REPORT INFORMATION
  Report Type: 
  Country: None (occurrence: None)
  Receive Date: 20100913
  Receipt Date: 20100826
  Transmission Date: 20110219
  Serious: Yes (Other)
  Sender: FDA-Public Use
  Company Number: 017865

PATIENT
  Sex: Female
  Weight: 85.7298 kg

DRUGS (12)
  1. CIMZIA [Suspect]
     Indication: CROHN'S DISEASE
     Dosage: (400 MG 1X/4 WEEKS SUBCUTANEOUS)
     Route: 058
     Dates: start: 20100212
  2. ENTOCORT EC [Concomitant]
  3. PREDNISONE [Concomitant]
  4. AZATHIOPRINE [Concomitant]
  5. INFLIXIMAB [Concomitant]
  6. MULTIVITAMIN /01229101/ [Concomitant]
  7. VITAMIN D3 [Concomitant]
  8. ZYRTEC [Concomitant]
  9. ENEMAS [Concomitant]
  10. MESALAMINE [Concomitant]
  11. CIPROFLOXACIN [Concomitant]
  12. ACETAMINOPHEN [Concomitant]

REACTIONS (1)
  - BREAST CANCER FEMALE [None]
